FAERS Safety Report 12706036 (Version 2)
Quarter: 2016Q3

REPORT INFORMATION
  Report Type: Spontaneous
  Country: US (occurrence: US)
  Receive Date: 20160901
  Receipt Date: 20160901
  Transmission Date: 20161109
  Serious: No
  Sender: FDA-Public Use
  Company Number: US-JAZZ-2016-US-007734

PATIENT
  Age: 22 Year
  Sex: Female

DRUGS (13)
  1. XOPENEX [Concomitant]
     Active Substance: LEVALBUTEROL HYDROCHLORIDE
  2. ASPIRIN. [Concomitant]
     Active Substance: ASPIRIN
  3. ASMANEX [Concomitant]
     Active Substance: MOMETASONE FUROATE
  4. FERGON [Concomitant]
     Active Substance: FERROUS GLUCONATE
  5. ENTOCORT EC [Concomitant]
     Active Substance: BUDESONIDE
  6. ALVESCO [Concomitant]
     Active Substance: CICLESONIDE
  7. LORATADINE. [Concomitant]
     Active Substance: LORATADINE
  8. PENTASA [Concomitant]
     Active Substance: MESALAMINE
  9. PRILOSEC [Concomitant]
     Active Substance: OMEPRAZOLE MAGNESIUM
  10. XYREM [Suspect]
     Active Substance: SODIUM OXYBATE
     Indication: NARCOLEPSY
     Dosage: 2.25 G, BID
     Route: 048
     Dates: start: 201604, end: 201604
  11. MULTIVITAMINS [Concomitant]
     Active Substance: VITAMINS
  12. XYREM [Suspect]
     Active Substance: SODIUM OXYBATE
     Dosage: 3 G, BID
     Route: 048
     Dates: start: 201604
  13. PROVIGIL [Concomitant]
     Active Substance: MODAFINIL

REACTIONS (10)
  - Hypersensitivity [Unknown]
  - Dizziness [Not Recovered/Not Resolved]
  - Nausea [Not Recovered/Not Resolved]
  - Asthma [Unknown]
  - Rash [Unknown]
  - Chest discomfort [Unknown]
  - Feeling abnormal [Unknown]
  - Dissociation [Unknown]
  - Dyspnoea [Recovered/Resolved]
  - Urticaria [Unknown]

NARRATIVE: CASE EVENT DATE: 201604
